FAERS Safety Report 8304993-1 (Version None)
Quarter: 2012Q2

REPORT INFORMATION
  Report Type: 
  Country: None (occurrence: None)
  Receive Date: 20120423
  Receipt Date: 20120417
  Transmission Date: 20120825
  Serious: No
  Sender: FDA-Public Use
  Company Number: US-BAYER-2012-038928

PATIENT

DRUGS (5)
  1. LIDOCAINE [Concomitant]
  2. EXCEDRIN [CAFFEINE,PARACETAMOL] [Concomitant]
  3. ALEVE (CAPLET) [Suspect]
     Indication: PRODUCT USED FOR UNKNOWN INDICATION
  4. TRAMADOL HCL [Concomitant]
  5. VALIUM [Concomitant]

REACTIONS (1)
  - PAIN [None]
